FAERS Safety Report 26011717 (Version 1)
Quarter: 2025Q4

REPORT INFORMATION
  Report Type: Spontaneous
  Country: US (occurrence: US)
  Receive Date: 20251107
  Receipt Date: 20251107
  Transmission Date: 20260118
  Serious: Yes (Other)
  Sender: AUROBINDO
  Company Number: US-MLMSERVICE-20250120-PI348320-00246-2

PATIENT
  Age: 5 Year
  Sex: Male
  Weight: 25 kg

DRUGS (9)
  1. OLANZAPINE [Suspect]
     Active Substance: OLANZAPINE
     Indication: Behaviour disorder
     Dosage: UNK
     Route: 065
  2. OLANZAPINE [Suspect]
     Active Substance: OLANZAPINE
     Indication: Aggression
  3. OLANZAPINE [Suspect]
     Active Substance: OLANZAPINE
     Indication: Anxiety
  4. METHYLPHENIDATE HYDROCHLORIDE [Suspect]
     Active Substance: METHYLPHENIDATE HYDROCHLORIDE
     Indication: Aggression
     Dosage: UNK
     Route: 062
  5. METHYLPHENIDATE HYDROCHLORIDE [Suspect]
     Active Substance: METHYLPHENIDATE HYDROCHLORIDE
     Indication: Anxiety
  6. CLONIDINE [Suspect]
     Active Substance: CLONIDINE
     Indication: Aggression
     Dosage: UNK
     Route: 062
  7. CLONIDINE [Suspect]
     Active Substance: CLONIDINE
     Indication: Anxiety
  8. DIPHENHYDRAMINE [Suspect]
     Active Substance: DIPHENHYDRAMINE
     Indication: Aggression
     Dosage: UNK
     Route: 065
  9. DIPHENHYDRAMINE [Suspect]
     Active Substance: DIPHENHYDRAMINE
     Indication: Anxiety

REACTIONS (5)
  - Irritability [Unknown]
  - Hypotension [Unknown]
  - Agitation [Unknown]
  - Rebound effect [Unknown]
  - Extrapyramidal disorder [Unknown]
